FAERS Safety Report 21089114 (Version 1)
Quarter: 2022Q3

REPORT INFORMATION
  Report Type: Spontaneous
  Country: US (occurrence: US)
  Receive Date: 20220715
  Receipt Date: 20220715
  Transmission Date: 20221027
  Serious: Yes (Other)
  Sender: FDA-Public Use
  Company Number: US-SA-SAC20220712001073

PATIENT
  Age: 44 Year
  Sex: Female

DRUGS (1)
  1. ZANTAC [Suspect]
     Active Substance: RANITIDINE HYDROCHLORIDE
     Indication: Gastrooesophageal reflux disease
     Dosage: 150 MG, QD
     Dates: start: 200501, end: 201701

REACTIONS (5)
  - Pancreatic carcinoma [Unknown]
  - Colorectal cancer stage II [Unknown]
  - Ovarian cancer [Unknown]
  - Oesophageal carcinoma [Unknown]
  - Laryngeal cancer stage III [Unknown]

NARRATIVE: CASE EVENT DATE: 20080101
